FAERS Safety Report 17138153 (Version 1)
Quarter: 2019Q4

REPORT INFORMATION
  Report Type: Spontaneous
  Country: US (occurrence: US)
  Receive Date: 20191211
  Receipt Date: 20191211
  Transmission Date: 20200122
  Serious: No
  Sender: FDA-Public Use
  Company Number: US-ASTRAZENECA-2019SF63420

PATIENT
  Age: 22581 Day
  Sex: Female
  Weight: 76.7 kg

DRUGS (2)
  1. BYDUREON BCISE [Suspect]
     Active Substance: EXENATIDE
     Indication: TYPE 2 DIABETES MELLITUS
     Route: 058
     Dates: start: 20190801
  2. VICTOZA [Concomitant]
     Active Substance: LIRAGLUTIDE

REACTIONS (3)
  - Cholecystitis [Unknown]
  - Device ineffective [Unknown]
  - Inability to afford medication [Unknown]

NARRATIVE: CASE EVENT DATE: 20190801
